FAERS Safety Report 12435769 (Version 1)
Quarter: 2016Q2

REPORT INFORMATION
  Report Type: Spontaneous
  Country: DE (occurrence: DE)
  Receive Date: 20160603
  Receipt Date: 20160603
  Transmission Date: 20160815
  Serious: Yes (Congenital Anomaly, Other)
  Sender: FDA-Public Use
  Company Number: GXKR2016DE002546

PATIENT

DRUGS (4)
  1. FLUOMIZIN [Concomitant]
     Indication: MYCOPLASMA INFECTION
     Dosage: ONCE A DAY
     Route: 064
     Dates: start: 20150604, end: 20150609
  2. ABILIFY [Suspect]
     Active Substance: ARIPIPRAZOLE
     Indication: PRODUCT USED FOR UNKNOWN INDICATION
     Dosage: 5 [MG/D ]
     Route: 064
     Dates: start: 20150427, end: 20160208
  3. DOXYCYCLINE. [Suspect]
     Active Substance: DOXYCYCLINE
     Indication: MYCOPLASMA INFECTION
     Dosage: 200 [MG/D ]
     Route: 064
     Dates: start: 20150527, end: 20150605
  4. GRIPPEIMPFSTOFF [Concomitant]
     Active Substance: INFLUENZA VIRUS VACCINE
     Indication: IMMUNISATION
     Route: 064
     Dates: start: 20150818, end: 20150818

REACTIONS (2)
  - Ventricular septal defect [Not Recovered/Not Resolved]
  - Large for dates baby [Recovered/Resolved]
